FAERS Safety Report 14082455 (Version 1)
Quarter: 2017Q4

REPORT INFORMATION
  Report Type: Spontaneous
  Country: US (occurrence: US)
  Receive Date: 20171012
  Receipt Date: 20171012
  Transmission Date: 20180321
  Serious: No
  Sender: FDA-Public Use
  Company Number: US-MYLANLABS-2017M1052565

PATIENT
  Sex: Male

DRUGS (1)
  1. ACYCLOVIR SUSPENSION [Suspect]
     Active Substance: ACYCLOVIR
     Indication: PRODUCT USED FOR UNKNOWN INDICATION
     Dosage: 9 ML, QID

REACTIONS (2)
  - Nausea [Unknown]
  - Vomiting [Unknown]
